FAERS Safety Report 5114911-5 (Version None)
Quarter: 2006Q3

REPORT INFORMATION
  Report Type: 
  Country: None (occurrence: None)
  Receive Date: 20060921
  Receipt Date: 20060912
  Transmission Date: 20061208
  Serious: Yes (Life-Threatening, Hospitalization)
  Sender: FDA-Public Use
  Company Number: 2006RR-03700

PATIENT
  Age: 80 Year
  Sex: Female

DRUGS (5)
  1. METFORMIN HCL [Suspect]
     Indication: DIABETES MELLITUS NON-INSULIN-DEPENDENT
     Dosage: 500 BID, ORAL
     Route: 048
     Dates: start: 20060301, end: 20060716
  2. AVANDAMET [Suspect]
     Indication: DIABETES MELLITUS NON-INSULIN-DEPENDENT
     Dosage: 500, BID, ORAL
     Route: 048
     Dates: start: 20060301, end: 20060716
  3. ADALAT CC [Concomitant]
  4. IRBESARTAN [Concomitant]
  5. NAPROXEN [Concomitant]

REACTIONS (6)
  - BACK PAIN [None]
  - CONDITION AGGRAVATED [None]
  - FAECES PALE [None]
  - JAUNDICE CHOLESTATIC [None]
  - PAIN [None]
  - URINE COLOUR ABNORMAL [None]
